FAERS Safety Report 9287436 (Version 3)
Quarter: 2013Q3

REPORT INFORMATION
  Report Type: Spontaneous
  Country: SE (occurrence: SE)
  Receive Date: 20130514
  Receipt Date: 20130911
  Transmission Date: 20140515
  Serious: Yes (Hospitalization)
  Sender: FDA-Public Use
  Company Number: SE-ROCHE-1223827

PATIENT
  Age: 41 Year
  Sex: Female

DRUGS (3)
  1. ZELBORAF [Suspect]
     Indication: PRODUCT USED FOR UNKNOWN INDICATION
     Route: 048
     Dates: start: 20130415, end: 20130430
  2. CITALOPRAM [Concomitant]
  3. BETAPRED [Concomitant]
     Route: 065
     Dates: start: 20130503

REACTIONS (5)
  - Rash maculo-papular [Recovered/Resolved]
  - Hypokalaemia [Recovered/Resolved]
  - Hyponatraemia [Recovered/Resolved]
  - General physical health deterioration [Unknown]
  - Pyrexia [Unknown]
